FAERS Safety Report 15320302 (Version 1)
Quarter: 2018Q3

REPORT INFORMATION
  Report Type: Spontaneous
  Country: ES (occurrence: ES)
  Receive Date: 20180827
  Receipt Date: 20180827
  Transmission Date: 20181010
  Serious: Yes (Other)
  Sender: FDA-Public Use
  Company Number: ES-AUROBINDO-AUR-APL-2018-043109

PATIENT
  Age: 77 Year
  Sex: Male

DRUGS (5)
  1. RIVASTIGMINE TRANSDERMAL PATCH [Suspect]
     Active Substance: RIVASTIGMINE
     Indication: COGNITIVE DISORDER
     Dosage: RIVASTIGMINA 4.6 ONE PATCH A DAY FOR 1 MONTH, LATER RIVASTIGMINE 9.51 ONE PATCH A DAY CONTINUOUSLY
     Route: 062
     Dates: start: 20180604
  2. ENALAPRIL [Concomitant]
     Active Substance: ENALAPRIL
     Indication: HYPERTENSION
     Dosage: 2/24H
     Route: 048
     Dates: start: 20140120
  3. OMEPRAZOL                          /00661201/ [Concomitant]
     Active Substance: OMEPRAZOLE
     Indication: OESOPHAGITIS
     Dosage: 1/24H
     Route: 048
  4. CITALOPRAM [Suspect]
     Active Substance: CITALOPRAM HYDROBROMIDE
     Indication: DEPRESSION
     Dosage: 1/24H
     Route: 048
     Dates: start: 20180105, end: 20180730
  5. LORAZEPAM. [Concomitant]
     Active Substance: LORAZEPAM
     Indication: DEPRESSION
     Dosage: 1/12H
     Route: 048
     Dates: start: 20150422

REACTIONS (5)
  - Hyponatraemia [Recovered/Resolved]
  - Asthenia [Recovered/Resolved]
  - Disorientation [Recovered/Resolved]
  - Dizziness [Recovered/Resolved]
  - Gait disturbance [Recovered/Resolved]

NARRATIVE: CASE EVENT DATE: 201807
